FAERS Safety Report 7544903-8 (Version None)
Quarter: 2011Q2

REPORT INFORMATION
  Report Type: 
  Country: None (occurrence: None)
  Receive Date: 20110614
  Receipt Date: 20110527
  Transmission Date: 20111010
  Serious: Yes (Other)
  Sender: FDA-Public Use
  Company Number: US-BAYER-201028512NA

PATIENT
  Age: 16 Year
  Sex: Female
  Weight: 65.76 kg

DRUGS (7)
  1. AMITRIPTYLINE HYDROCHLORIDE [Concomitant]
     Dosage: 10 MG, BID
     Route: 048
  2. IBUPROFEN [Concomitant]
     Dosage: 800 MG, UNK
  3. NEXIUM [Concomitant]
     Dosage: 20 MG, QD
     Route: 048
     Dates: start: 20080501
  4. BUSPIRONE HCL [Concomitant]
     Indication: ANXIETY
     Dosage: 10 MG, QD
     Route: 048
  5. AMITRIPTYLINE HYDROCHLORIDE [Concomitant]
     Indication: ANXIETY
     Dosage: 50 MG, UNK
     Route: 048
  6. YASMIN [Suspect]
     Indication: PREMENSTRUAL SYNDROME
     Dosage: UNK UNK, UNK
     Route: 048
     Dates: start: 20070101, end: 20080201
  7. BUSPAR [Concomitant]
     Dosage: 10 MG, BID
     Route: 048

REACTIONS (5)
  - ABDOMINAL PAIN [None]
  - DIARRHOEA [None]
  - GALLBLADDER NON-FUNCTIONING [None]
  - CHOLECYSTITIS CHRONIC [None]
  - NAUSEA [None]
